FAERS Safety Report 4925240-4 (Version None)
Quarter: 2006Q1

REPORT INFORMATION
  Report Type: 
  Country: None (occurrence: None)
  Receive Date: 20060228
  Receipt Date: 20060222
  Transmission Date: 20060701
  Serious: Yes (Life-Threatening, Hospitalization)
  Sender: FDA-Public Use
  Company Number: PHBS2006JP02960

PATIENT
  Age: 69 Year
  Sex: Male

DRUGS (2)
  1. NICARDIPINE HYDROCHLORIDE [Concomitant]
     Indication: AORTIC DISSECTION
     Route: 042
  2. METOPROLOL TARTRATE [Suspect]
     Indication: AORTIC DISSECTION
     Route: 048

REACTIONS (4)
  - ANURIA [None]
  - ATRIOVENTRICULAR BLOCK COMPLETE [None]
  - BLOOD PRESSURE DECREASED [None]
  - SHOCK [None]
